FAERS Safety Report 15679445 (Version 2)
Quarter: 2019Q1

REPORT INFORMATION
  Report Type: Spontaneous
  Country: DK (occurrence: DK)
  Receive Date: 20181203
  Receipt Date: 20190109
  Transmission Date: 20190417
  Serious: Yes (Other)
  Sender: FDA-Public Use
  Company Number: DK-TEVA-2018-DK-982775

PATIENT
  Age: 25 Year
  Sex: Male

DRUGS (8)
  1. MORPHINE [Suspect]
     Active Substance: MORPHINE
     Indication: NECK PAIN
     Dosage: (20-40MG WITH A FURTHER OPTION OF 10MG FOUR TIMES AS NEEDED)
     Route: 065
  2. TRAMADOL. [Suspect]
     Active Substance: TRAMADOL
     Indication: NECK PAIN
     Dosage: (DAILY DOSE 150-400 MG)
     Route: 065
  3. MORPHINE [Suspect]
     Active Substance: MORPHINE
     Indication: BACK PAIN
  4. TRAMADOL. [Suspect]
     Active Substance: TRAMADOL
     Indication: BACK PAIN
  5. FENTANYL. [Suspect]
     Active Substance: FENTANYL
     Indication: BACK PAIN
  6. CHLORZOXAZONE. [Concomitant]
     Active Substance: CHLORZOXAZONE
     Indication: BACK PAIN
  7. CHLORZOXAZONE. [Concomitant]
     Active Substance: CHLORZOXAZONE
     Indication: NECK PAIN
     Dosage: (250 MG 3 TIMES DAILY)
     Route: 065
  8. FENTANYL. [Suspect]
     Active Substance: FENTANYL
     Indication: NECK PAIN
     Dosage: 25MICROGRAM/HOUR
     Route: 061

REACTIONS (1)
  - Secondary adrenocortical insufficiency [Recovered/Resolved]
